FAERS Safety Report 4277086-0 (Version None)
Quarter: 2004Q1

REPORT INFORMATION
  Report Type: 
  Country: None (occurrence: None)
  Receive Date: 20040120
  Receipt Date: 20040120
  Transmission Date: 20041129
  Serious: Yes (Hospitalization)
  Sender: FDA-Public Use
  Company Number: None

PATIENT
  Age: 81 Year
  Sex: Male
  Weight: 89.3586 kg

DRUGS (7)
  1. ATENOLOL [Suspect]
     Indication: HYPERTENSION
     Dates: start: 20030109, end: 20031203
  2. HYDROCHLOROTHIAZIDE [Suspect]
  3. LISINOPRIL [Suspect]
     Indication: HYPERTENSION
     Dosage: LISINOPRIL 40MG QD
     Dates: start: 20030109, end: 20031203
  4. CLOPIDOGREL BISULFATE [Concomitant]
  5. GLYBURIDE [Concomitant]
  6. MECLIZINE HCL [Concomitant]
  7. MOISTURIZING LOTION [Concomitant]

REACTIONS (1)
  - FALL [None]
